FAERS Safety Report 16089120 (Version 1)
Quarter: 2019Q1

REPORT INFORMATION
  Report Type: Spontaneous
  Country: JP (occurrence: JP)
  Receive Date: 20190319
  Receipt Date: 20190319
  Transmission Date: 20190418
  Serious: Yes (Hospitalization)
  Sender: FDA-Public Use
  Company Number: JP-EISAI MEDICAL RESEARCH-EC-2019-053369

PATIENT
  Sex: Male

DRUGS (1)
  1. LENVIMA [Suspect]
     Active Substance: LENVATINIB
     Indication: HEPATOCELLULAR CARCINOMA
     Dosage: ALTERNATE-DAY DOSING OF 4 MG AND 8 MG
     Route: 048
     Dates: start: 201809, end: 201903

REACTIONS (3)
  - Decreased appetite [Unknown]
  - Hypothyroidism [Unknown]
  - Oedema [Unknown]

NARRATIVE: CASE EVENT DATE: 2019
